FAERS Safety Report 8544416-0 (Version None)
Quarter: 2012Q3

REPORT INFORMATION
  Report Type: 
  Country: None (occurrence: None)
  Receive Date: 20120727
  Receipt Date: 20120719
  Transmission Date: 20120928
  Serious: Yes (Hospitalization)
  Sender: FDA-Public Use
  Company Number: JP-GENZYME-FABR-1001590

PATIENT
  Sex: Male
  Weight: 67 kg

DRUGS (14)
  1. FABRAZYME [Suspect]
     Dosage: 70 MG, Q4W
     Route: 042
     Dates: start: 20091112, end: 20100623
  2. METOCLOPRAMIDE [Concomitant]
     Indication: FABRY'S DISEASE
     Dosage: UNK
  3. FABRAZYME [Suspect]
     Indication: FABRY'S DISEASE
     Dosage: 50 MG, Q2W
     Route: 042
     Dates: start: 20101208
  4. MECOBALAMIN [Concomitant]
     Indication: FABRY'S DISEASE
     Dosage: 1500 MCG, TID
     Dates: start: 20100910, end: 20101207
  5. TEPRENONE [Concomitant]
     Indication: FABRY'S DISEASE
     Dosage: 50 MG, UNK
  6. BUCLADESINE SODIUM [Concomitant]
     Indication: FABRY'S DISEASE
     Dosage: UNK
     Dates: start: 20100805
  7. LIDOCAINE HYDROCHLORIDE [Concomitant]
     Indication: FABRY'S DISEASE
     Dosage: UNK
  8. IFENPRODIL TARTRATE [Concomitant]
     Indication: FABRY'S DISEASE
     Dosage: 60 MG, TID
     Dates: start: 20101124, end: 20101207
  9. FABRAZYME [Suspect]
     Dosage: 35 MG, Q2W
     Dates: start: 20100707, end: 20101110
  10. SULFADIAZINE [Concomitant]
     Indication: FABRY'S DISEASE
     Dosage: UNK
  11. FABRAZYME [Suspect]
     Dosage: 1.0 MG/KG, Q2W
     Route: 042
     Dates: start: 20060808, end: 20091029
  12. LOXOPROFEN SODIUM [Concomitant]
     Indication: FABRY'S DISEASE
     Dosage: 60 MG, UNK
  13. BENZALKONIUM CHLORIDE [Concomitant]
     Indication: FABRY'S DISEASE
     Dosage: UNK
     Dates: start: 20100805
  14. CLOSTRIDIUM BUTYRICUM [Concomitant]
     Indication: FABRY'S DISEASE
     Dosage: 1 G, UNK

REACTIONS (1)
  - DEAFNESS UNILATERAL [None]
